FAERS Safety Report 12960946 (Version 1)
Quarter: 2016Q4

REPORT INFORMATION
  Report Type: Spontaneous
  Country: US (occurrence: US)
  Receive Date: 20161121
  Receipt Date: 20161121
  Transmission Date: 20170207
  Serious: No
  Sender: FDA-Public Use
  Company Number: US-BAYER-2016-221994

PATIENT
  Age: 59 Year
  Sex: Male

DRUGS (2)
  1. BETASERON [Suspect]
     Active Substance: INTERFERON BETA-1B
     Indication: PERIODIC LIMB MOVEMENT DISORDER
     Dosage: 0.3 MG, UNK
     Route: 058
  2. BETASERON [Suspect]
     Active Substance: INTERFERON BETA-1B
     Indication: OSTEOARTHRITIS

REACTIONS (2)
  - Fatigue [None]
  - Product use issue [None]

NARRATIVE: CASE EVENT DATE: 20161118
